FAERS Safety Report 13751905 (Version 2)
Quarter: 2017Q3

REPORT INFORMATION
  Report Type: Spontaneous
  Country: US (occurrence: US)
  Receive Date: 20170713
  Receipt Date: 20170822
  Transmission Date: 20171127
  Serious: Yes (Other)
  Sender: FDA-Public Use
  Company Number: US-AMGEN-USASP2017104401

PATIENT
  Age: 61 Year
  Sex: Female

DRUGS (1)
  1. ETANERCEPT [Suspect]
     Active Substance: ETANERCEPT
     Indication: RHEUMATOID ARTHRITIS
     Dosage: UNK
     Route: 065

REACTIONS (8)
  - Facial pain [Unknown]
  - Balance disorder [Unknown]
  - Deafness neurosensory [Unknown]
  - Ear pain [Unknown]
  - Hypoaesthesia [Unknown]
  - Cranial nerve disorder [Unknown]
  - Paraesthesia [Unknown]
  - Neurosarcoidosis [Unknown]
